FAERS Safety Report 7712958-3 (Version None)
Quarter: 2011Q3

REPORT INFORMATION
  Report Type: 
  Country: None (occurrence: None)
  Receive Date: 20110826
  Receipt Date: 20110815
  Transmission Date: 20111222
  Serious: Yes (Hospitalization)
  Sender: FDA-Public Use
  Company Number: PHHY2011CA73434

PATIENT

DRUGS (1)
  1. RASILEZ [Suspect]

REACTIONS (1)
  - SWELLING [None]
